FAERS Safety Report 5571166-5 (Version None)
Quarter: 2007Q4

REPORT INFORMATION
  Report Type: 
  Country: None (occurrence: None)
  Receive Date: 20071221
  Receipt Date: 20061206
  Transmission Date: 20080405
  Serious: No
  Sender: FDA-Public Use
  Company Number: A0630624A

PATIENT
  Age: 86 Year
  Sex: Female

DRUGS (2)
  1. FLONASE [Suspect]
     Indication: RHINITIS
     Dosage: 1SPR AS REQUIRED
     Route: 045
     Dates: start: 20030101
  2. PROZAC [Concomitant]

REACTIONS (1)
  - EXPIRED DRUG ADMINISTERED [None]
